FAERS Safety Report 12617205 (Version 2)
Quarter: 2016Q3

REPORT INFORMATION
  Report Type: Report from Study
  Country: CA (occurrence: CA)
  Receive Date: 20160803
  Receipt Date: 20160805
  Transmission Date: 20161109
  Serious: Yes (Death, Hospitalization)
  Sender: FDA-Public Use
  Company Number: CA-AMGEN-CANNI2016097943

PATIENT
  Age: 49 Year
  Sex: Female

DRUGS (1)
  1. NEUPOGEN [Suspect]
     Active Substance: FILGRASTIM
     Indication: PRODUCT USED FOR UNKNOWN INDICATION
     Dosage: 1 ML/300 MCG, UNK
     Route: 065
     Dates: start: 20151112

REACTIONS (1)
  - Death [Fatal]

NARRATIVE: CASE EVENT DATE: 20160722
